FAERS Safety Report 25329633 (Version 2)
Quarter: 2025Q2

REPORT INFORMATION
  Report Type: Spontaneous
  Country: US (occurrence: US)
  Receive Date: 20250519
  Receipt Date: 20250523
  Transmission Date: 20250716
  Serious: Yes (Death, Hospitalization)
  Sender: TEVA
  Company Number: US-TEVA-VS-3331378

PATIENT
  Sex: Male

DRUGS (6)
  1. CABERGOLINE [Suspect]
     Active Substance: CABERGOLINE
     Indication: Prolactin-producing pituitary tumour
     Route: 065
  2. CABERGOLINE [Suspect]
     Active Substance: CABERGOLINE
     Indication: Prolactin-producing pituitary tumour
     Route: 065
  3. CABERGOLINE [Suspect]
     Active Substance: CABERGOLINE
     Indication: Prolactin-producing pituitary tumour
     Route: 065
  4. CABERGOLINE [Suspect]
     Active Substance: CABERGOLINE
     Indication: Prolactin-producing pituitary tumour
     Route: 065
  5. CABERGOLINE [Suspect]
     Active Substance: CABERGOLINE
     Indication: Prolactin-producing pituitary tumour
     Route: 065
  6. PEMBROLIZUMAB [Suspect]
     Active Substance: PEMBROLIZUMAB
     Indication: Prolactin-producing pituitary tumour
     Route: 065

REACTIONS (1)
  - Drug ineffective [Fatal]
